FAERS Safety Report 8755858 (Version 2)
Quarter: 2013Q4

REPORT INFORMATION
  Report Type: Spontaneous
  Country: US (occurrence: US)
  Receive Date: 20120827
  Receipt Date: 20131101
  Transmission Date: 20140711
  Serious: No
  Sender: FDA-Public Use
  Company Number: US-009507513-1208USA009646

PATIENT
  Age: 18 Year
  Sex: Female

DRUGS (1)
  1. SAPHRIS [Suspect]
     Indication: BIPOLAR DISORDER
     Dosage: 10 MG, QD AT NIGHT
     Route: 060

REACTIONS (3)
  - Sleep disorder [Recovered/Resolved]
  - Head injury [Recovered/Resolved]
  - Inappropriate schedule of drug administration [Unknown]
